FAERS Safety Report 13983864 (Version 4)
Quarter: 2017Q4

REPORT INFORMATION
  Report Type: Spontaneous
  Country: JP (occurrence: JP)
  Receive Date: 20170918
  Receipt Date: 20171023
  Transmission Date: 20180321
  Serious: Yes (Hospitalization, Other)
  Sender: FDA-Public Use
  Company Number: JP-BAUSCH-BL-2017-026976

PATIENT
  Age: 89 Year
  Sex: Female
  Weight: 44 kg

DRUGS (2)
  1. BESELNA CREAM 5% [Suspect]
     Active Substance: IMIQUIMOD
     Indication: ACTINIC KERATOSIS
     Route: 061
     Dates: start: 20160316, end: 20160410
  2. BESELNA CREAM 5% [Suspect]
     Active Substance: IMIQUIMOD
     Route: 061
     Dates: start: 20160511, end: 20160601

REACTIONS (2)
  - Dermatitis psoriasiform [Recovering/Resolving]
  - Application site erythema [Unknown]

NARRATIVE: CASE EVENT DATE: 20160601
